FAERS Safety Report 25622523 (Version 1)
Quarter: 2025Q3

REPORT INFORMATION
  Report Type: Spontaneous
  Country: CN (occurrence: CN)
  Receive Date: 20250730
  Receipt Date: 20250730
  Transmission Date: 20251020
  Serious: Yes (Other)
  Sender: NOVARTIS
  Company Number: CN-002147023-NVSC2025CN119131

PATIENT
  Weight: 55 kg

DRUGS (3)
  1. CYCLOSPORINE [Interacting]
     Active Substance: CYCLOSPORINE
     Indication: Prophylaxis against transplant rejection
     Dosage: 70 MG, QD (BEFORE ROXADUSTAT)
     Route: 048
  2. CYCLOSPORINE [Interacting]
     Active Substance: CYCLOSPORINE
     Dosage: 85 MG, QD (CO-ADMINISTERED WITH ROXADUSTAT)
     Route: 048
  3. ROXADUSTAT [Interacting]
     Active Substance: ROXADUSTAT
     Indication: Nephrogenic anaemia
     Dosage: 50 MG, TIW
     Route: 048

REACTIONS (2)
  - Drug level increased [Unknown]
  - Drug interaction [Unknown]
